FAERS Safety Report 9674469 (Version 2)
Quarter: 2013Q4

REPORT INFORMATION
  Report Type: Spontaneous
  Country: US (occurrence: US)
  Receive Date: 20131107
  Receipt Date: 20131216
  Transmission Date: 20140711
  Serious: Yes (Hospitalization, Other)
  Sender: FDA-Public Use
  Company Number: US-009507513-1310USA013973

PATIENT
  Age: 70 Year
  Sex: Male

DRUGS (5)
  1. TEMODAR [Suspect]
     Indication: GLIOBLASTOMA MULTIFORME
     Dosage: 150 MG DAILY
     Route: 048
     Dates: end: 20131026
  2. KEPPRA [Concomitant]
  3. SINGULAIR [Concomitant]
     Route: 048
  4. CRESTOR [Concomitant]
  5. ADVAIR [Concomitant]

REACTIONS (4)
  - Deep vein thrombosis [Not Recovered/Not Resolved]
  - Haemodynamic instability [Not Recovered/Not Resolved]
  - Endotracheal intubation [Not Recovered/Not Resolved]
  - Resuscitation [Not Recovered/Not Resolved]
